FAERS Safety Report 15762876 (Version 1)
Quarter: 2018Q4

REPORT INFORMATION
  Report Type: Spontaneous
  Country: US (occurrence: US)
  Receive Date: 20181226
  Receipt Date: 20181226
  Transmission Date: 20190205
  Serious: No
  Sender: FDA-Public Use
  Company Number: US-GLAXOSMITHKLINE-US2018230872

PATIENT
  Age: 68 Year
  Sex: Female

DRUGS (1)
  1. ABREVA [Suspect]
     Active Substance: DOCOSANOL
     Indication: ORAL HERPES
     Dosage: 1 UNK, UNK
     Route: 061
     Dates: start: 20181206, end: 20181216

REACTIONS (3)
  - Drug ineffective [Unknown]
  - Oral herpes [Unknown]
  - Condition aggravated [Not Recovered/Not Resolved]
